FAERS Safety Report 13597768 (Version 1)
Quarter: 2017Q2

REPORT INFORMATION
  Report Type: Spontaneous
  Country: US (occurrence: US)
  Receive Date: 20170531
  Receipt Date: 20170531
  Transmission Date: 20170830
  Serious: Yes (Other)
  Sender: FDA-Public Use
  Company Number: US-SHIRE-US201711592

PATIENT
  Age: 5 Decade
  Sex: Female

DRUGS (2)
  1. VYVANSE [Suspect]
     Active Substance: LISDEXAMFETAMINE DIMESYLATE
     Indication: PRODUCT USED FOR UNKNOWN INDICATION
     Dosage: 20 MG, AS REQ^D
     Route: 048
  2. VYVANSE [Suspect]
     Active Substance: LISDEXAMFETAMINE DIMESYLATE
     Dosage: 40 MG, 1X/DAY:QD
     Route: 048

REACTIONS (8)
  - Heart rate increased [Recovering/Resolving]
  - Drug intolerance [Unknown]
  - Blood pressure increased [Recovering/Resolving]
  - Therapeutic response unexpected [Unknown]
  - Autoimmune disorder [Recovering/Resolving]
  - Inappropriate schedule of drug administration [Unknown]
  - Condition aggravated [Recovering/Resolving]
  - Swelling [Recovering/Resolving]
